FAERS Safety Report 8232314-1 (Version None)
Quarter: 2012Q1

REPORT INFORMATION
  Report Type: 
  Country: None (occurrence: None)
  Receive Date: 20120323
  Receipt Date: 20120314
  Transmission Date: 20120608
  Serious: No
  Sender: FDA-Public Use
  Company Number: US-B.I. PHARMACEUTICALS,INC./RIDGEFIELD-2012-BP-01210BP

PATIENT
  Sex: Male
  Weight: 79.74 kg

DRUGS (9)
  1. KLONOPIN [Concomitant]
     Indication: ANXIETY
     Route: 048
     Dates: start: 20010101
  2. VITAMIN B-12 [Concomitant]
     Indication: ROUTINE HEALTH MAINTENANCE
     Route: 048
     Dates: start: 20010101
  3. DICLOFENAC SODIUM [Concomitant]
     Indication: OSTEOARTHRITIS
     Route: 048
     Dates: start: 20010101
  4. AGGRENOX [Suspect]
     Indication: CEREBROVASCULAR ACCIDENT PROPHYLAXIS
     Route: 048
     Dates: start: 20070101, end: 20120101
  5. ASPIRIN [Concomitant]
     Indication: ROUTINE HEALTH MAINTENANCE
     Dosage: 81 MG
     Route: 048
     Dates: start: 20010101
  6. TRAMADOL HCL [Concomitant]
     Indication: OSTEOARTHRITIS
     Dosage: 100 MG
     Route: 048
     Dates: start: 20010101
  7. FOLIC ACID [Concomitant]
     Indication: ROUTINE HEALTH MAINTENANCE
     Route: 048
     Dates: start: 20010101
  8. HYDROCHLOROTHIAZIDE [Concomitant]
     Indication: HYPERTENSION
     Route: 048
     Dates: start: 20010101
  9. FISH OIL [Concomitant]
     Indication: ROUTINE HEALTH MAINTENANCE
     Route: 048
     Dates: start: 20010101

REACTIONS (8)
  - HEADACHE [None]
  - ABDOMINAL PAIN UPPER [None]
  - HOT FLUSH [None]
  - CONFUSIONAL STATE [None]
  - DIARRHOEA [None]
  - SOMNOLENCE [None]
  - DYSPEPSIA [None]
  - FAECES DISCOLOURED [None]
